FAERS Safety Report 16913812 (Version 1)
Quarter: 2019Q4

REPORT INFORMATION
  Report Type: Spontaneous
  Country: US (occurrence: US)
  Receive Date: 20191014
  Receipt Date: 20191014
  Transmission Date: 20200122
  Serious: Yes (Death, Hospitalization, Other)
  Sender: FDA-Public Use
  Company Number: US-ROCHE-2430942

PATIENT
  Age: 76 Year
  Sex: Male
  Weight: 74.91 kg

DRUGS (12)
  1. RITUXAN [Suspect]
     Active Substance: RITUXIMAB
     Indication: POLYMYALGIA RHEUMATICA
     Route: 042
     Dates: start: 20190914
  2. LIPITOR [Concomitant]
     Active Substance: ATORVASTATIN CALCIUM
     Dosage: ONGOING: NO
     Route: 065
  3. GLUCOPHAGE [Concomitant]
     Active Substance: METFORMIN HYDROCHLORIDE
     Dosage: ONGOING: NO
     Route: 065
  4. TURMERIC [CURCUMA LONGA] [Concomitant]
     Dosage: ONGOING: NO
     Route: 065
  5. ZITHROMAX [Concomitant]
     Active Substance: AZITHROMYCIN DIHYDRATE
     Dosage: ONGOING: NO
     Route: 065
  6. LOVENOX [Concomitant]
     Active Substance: ENOXAPARIN SODIUM
     Dosage: ONGOING: NO
     Route: 058
  7. PROTONIX [Concomitant]
     Active Substance: PANTOPRAZOLE SODIUM
     Dosage: ONGOING: NO
     Route: 065
  8. DELTASONE [Concomitant]
     Active Substance: PREDNISONE
     Dosage: ONGOING: NO
     Route: 065
  9. PROVENTIL [Concomitant]
     Active Substance: ALBUTEROL
     Dosage: ONCE EVERY SIX HOURS AS NEEDED ;ONGOING: NO
     Route: 065
  10. ZYRTEC [Concomitant]
     Active Substance: CETIRIZINE HYDROCHLORIDE
     Dosage: ONGOING: NO
     Route: 065
  11. RITUXAN [Suspect]
     Active Substance: RITUXIMAB
     Dosage: ONGOING: NO
     Route: 042
     Dates: start: 20190923
  12. MYRBETRIQ [Concomitant]
     Active Substance: MIRABEGRON
     Dosage: ONGOING: NO
     Route: 065

REACTIONS (4)
  - Intentional product use issue [Unknown]
  - Blood pressure decreased [Not Recovered/Not Resolved]
  - Off label use [Unknown]
  - Death [Fatal]

NARRATIVE: CASE EVENT DATE: 20190914
